FAERS Safety Report 25907083 (Version 1)
Quarter: 2025Q4

REPORT INFORMATION
  Report Type: Spontaneous
  Country: US (occurrence: US)
  Receive Date: 20251010
  Receipt Date: 20251010
  Transmission Date: 20260117
  Serious: No
  Sender: HARMONY BIOSCIENCES
  Company Number: US-HARMONY BIOSCIENCES-2025HMY01741

PATIENT

DRUGS (2)
  1. WAKIX [Suspect]
     Active Substance: PITOLISANT HYDROCHLORIDE
     Indication: Narcolepsy
     Dosage: 17.8 MG, 1X/DAY
     Route: 065
     Dates: end: 20250725
  2. WAKIX [Suspect]
     Active Substance: PITOLISANT HYDROCHLORIDE
     Indication: Cataplexy
     Dosage: 8.9 MG, 1X/DAY, HALF OF 17.8 MG TABLET
     Route: 065
     Dates: start: 202507

REACTIONS (1)
  - Upper-airway cough syndrome [Unknown]

NARRATIVE: CASE EVENT DATE: 20250101
